FAERS Safety Report 24790621 (Version 1)
Quarter: 2024Q4

REPORT INFORMATION
  Report Type: Spontaneous
  Country: US (occurrence: US)
  Receive Date: 20241230
  Receipt Date: 20241230
  Transmission Date: 20250115
  Serious: Yes (Other)
  Sender: ABBVIE
  Company Number: US-ABBVIE-6066398

PATIENT
  Weight: 90 kg

DRUGS (1)
  1. CREON [Suspect]
     Active Substance: PANCRELIPASE AMYLASE\PANCRELIPASE LIPASE\PANCRELIPASE PROTEASE
     Indication: Pancreatectomy
     Dosage: 24000 PER MEAL AND SNACK (FIVE TIMES A DAY)
     Route: 048

REACTIONS (8)
  - Surgery [Unknown]
  - Malabsorption [Unknown]
  - Constipation [Unknown]
  - General symptom [Unknown]
  - Flatulence [Unknown]
  - Abdominal distension [Unknown]
  - Gastrooesophageal reflux disease [Unknown]
  - Dyspepsia [Unknown]
